FAERS Safety Report 8685788 (Version 2)
Quarter: 2012Q4

REPORT INFORMATION
  Report Type: Report from Study
  Country: JP (occurrence: JP)
  Receive Date: 20120726
  Receipt Date: 20121025
  Transmission Date: 20130627
  Serious: Yes (Hospitalization, Other)
  Sender: FDA-Public Use
  Company Number: PHHY2012JP043286

PATIENT
  Age: 73 Year
  Sex: Female
  Weight: 52 kg

DRUGS (2)
  1. AFINITOR [Suspect]
     Indication: PANCREATIC NEUROENDOCRINE TUMOUR
     Dosage: 10 mg, daily
     Route: 048
     Dates: start: 20120202, end: 20120412
  2. AMLODIPINE BESYLATE [Suspect]
     Route: 048

REACTIONS (5)
  - Interstitial lung disease [Recovered/Resolved]
  - Neoplasm progression [Unknown]
  - Malignant neoplasm progression [Unknown]
  - Hyperglycaemia [Not Recovered/Not Resolved]
  - Drug ineffective [Unknown]
